FAERS Safety Report 4908394-5 (Version None)
Quarter: 2006Q1

REPORT INFORMATION
  Report Type: 
  Country: None (occurrence: None)
  Receive Date: 20060210
  Receipt Date: 20060131
  Transmission Date: 20060701
  Serious: Yes (Other)
  Sender: FDA-Public Use
  Company Number: US-JNJFOC-20051105079

PATIENT
  Sex: Male

DRUGS (4)
  1. RISPERDAL CONSTA [Suspect]
     Indication: SCHIZOPHRENIA
     Dosage: GIVEN ON 28-NOV (YEAR UNSPECIFIED)
     Route: 050
  2. HALDOL [Concomitant]
  3. COGENTIN [Concomitant]
  4. BENADRYL [Concomitant]

REACTIONS (2)
  - LOSS OF CONSCIOUSNESS [None]
  - PLATELET COUNT DECREASED [None]
